FAERS Safety Report 8036524 (Version 3)
Quarter: 2013Q4

REPORT INFORMATION
  Report Type: Spontaneous
  Country: JP (occurrence: JP)
  Receive Date: 20110715
  Receipt Date: 20131126
  Transmission Date: 20140711
  Serious: Yes (Death, Other)
  Sender: FDA-Public Use
  Company Number: JP-ELI_LILLY_AND_COMPANY-JP201107002926

PATIENT
  Age: 64 Year
  Sex: Male
  Weight: 60 kg

DRUGS (26)
  1. ALIMTA [Suspect]
     Indication: NON-SMALL CELL LUNG CANCER STAGE IV
     Dosage: 860 MG, UNK
     Route: 042
     Dates: start: 20110302, end: 20110302
  2. ALIMTA [Suspect]
     Dosage: 840 MG, UNK
     Route: 042
     Dates: start: 20110406, end: 20110609
  3. CISPLATIN [Concomitant]
     Indication: NON-SMALL CELL LUNG CANCER STAGE IV
     Dosage: 130 MG, UNK
     Route: 042
     Dates: start: 20110302, end: 20110302
  4. CISPLATIN [Concomitant]
     Dosage: 100 MG, UNK
     Route: 042
     Dates: start: 20110406, end: 20110406
  5. PANVITAN [Concomitant]
     Dosage: 1 G, UNK
     Route: 048
     Dates: start: 20110223, end: 20110615
  6. METHYCOBAL [Concomitant]
     Dosage: 1 MG, UNK
     Route: 030
     Dates: start: 20110301, end: 20110517
  7. ALOXI [Concomitant]
     Dosage: 0.75 MG, UNK
     Route: 042
     Dates: start: 20110302, end: 20110609
  8. DECADRON                                /CAN/ [Concomitant]
     Dosage: 8 MG, UNK
     Route: 042
     Dates: start: 20110302, end: 20110609
  9. ZOMETA [Concomitant]
     Dosage: 4 MG, UNK
     Route: 042
     Dates: start: 20110317, end: 20110609
  10. GRAN [Concomitant]
     Dosage: 75 MG, UNK
     Route: 058
     Dates: start: 20110415, end: 20110417
  11. DUROTEP [Concomitant]
     Dosage: UNK
     Route: 062
     Dates: start: 20110215
  12. OXINORM [Concomitant]
     Dosage: UNK
     Route: 048
     Dates: start: 20110215
  13. LASIX [Concomitant]
  14. LOXONIN [Concomitant]
  15. MUCOSTA [Concomitant]
  16. PANTOSIN [Concomitant]
  17. MAGLAX [Concomitant]
  18. LYRICA [Concomitant]
  19. RIZE [Concomitant]
  20. GASTER D [Concomitant]
  21. SPIRIVA [Concomitant]
  22. HOKUNALIN [Concomitant]
  23. NOVAMIN [Concomitant]
  24. FLOMOX [Concomitant]
  25. EMEND [Concomitant]
  26. PRIMPERAN [Concomitant]

REACTIONS (3)
  - Interstitial lung disease [Fatal]
  - White blood cell count decreased [Unknown]
  - Platelet count decreased [Unknown]
